FAERS Safety Report 7551451-8 (Version None)
Quarter: 2011Q2

REPORT INFORMATION
  Report Type: 
  Country: None (occurrence: None)
  Receive Date: 20110616
  Receipt Date: 20110603
  Transmission Date: 20111010
  Serious: Yes (Other)
  Sender: FDA-Public Use
  Company Number: PHHY2009CA56002

PATIENT
  Sex: Female

DRUGS (5)
  1. SANDOSTATIN LAR [Suspect]
     Dosage: 30 MG, EVERY 4 WEEKS
     Route: 030
  2. SANDOSTATIN LAR [Suspect]
     Dosage: 30 MG, QMO
     Route: 030
  3. SANDOSTATIN LAR [Suspect]
     Indication: ACROMEGALY
     Dosage: 20 MG EVERY FOUR WEEKS
     Route: 030
     Dates: start: 20091119
  4. SANDOSTATIN LAR [Suspect]
     Dosage: 30 MG, EVERY 4 WEEKS
     Route: 030
     Dates: start: 20100310
  5. CHEMOTHERAPEUTICS,OTHER [Concomitant]

REACTIONS (15)
  - HOT FLUSH [None]
  - ANXIETY [None]
  - LABOUR PAIN [None]
  - HYPERHIDROSIS [None]
  - BREAST MASS [None]
  - LUNG DISORDER [None]
  - BLOOD PRESSURE INCREASED [None]
  - CHILLS [None]
  - METASTASES TO SPINE [None]
  - DIARRHOEA [None]
  - METASTASES TO LIVER [None]
  - GASTROINTESTINAL SOUNDS ABNORMAL [None]
  - HYPOAESTHESIA [None]
  - BREAST CANCER [None]
  - BLOOD PRESSURE DIASTOLIC DECREASED [None]
